APPROVED DRUG PRODUCT: LITHIUM CARBONATE
Active Ingredient: LITHIUM CARBONATE
Strength: 300MG
Dosage Form/Route: TABLET, EXTENDED RELEASE;ORAL
Application: A204445 | Product #001
Applicant: ALEMBIC PHARMACEUTICALS LTD
Approved: Jun 10, 2015 | RLD: No | RS: No | Type: DISCN